FAERS Safety Report 5468385-5 (Version None)
Quarter: 2007Q3

REPORT INFORMATION
  Report Type: 
  Country: None (occurrence: None)
  Receive Date: 20070926
  Receipt Date: 20070920
  Transmission Date: 20080115
  Serious: Yes (Other)
  Sender: FDA-Public Use
  Company Number: PHNR2007AU01459

PATIENT
  Age: 86 Year
  Sex: Male

DRUGS (6)
  1. NEORAL [Suspect]
     Indication: ECZEMA
     Dosage: 100 MG, BID
     Route: 048
     Dates: start: 20070622, end: 20070809
  2. PREDNISONE [Concomitant]
     Dosage: 10 MG, UNK
     Dates: start: 20070705
  3. PREDNISONE [Concomitant]
     Dosage: 7.5 MG, UNK
     Dates: start: 20070719
  4. PLAVIX [Concomitant]
     Dates: start: 20060101
  5. PERINDOPRIL ERBUMINE [Concomitant]
     Dates: start: 20060101
  6. ZOCOR [Concomitant]
     Dates: start: 20060101

REACTIONS (3)
  - BLOOD CREATINE PHOSPHOKINASE INCREASED [None]
  - MALAISE [None]
  - MUSCULAR WEAKNESS [None]
